FAERS Safety Report 7275825-8 (Version None)
Quarter: 2011Q1

REPORT INFORMATION
  Report Type: 
  Country: None (occurrence: None)
  Receive Date: 20110124
  Receipt Date: 20110118
  Transmission Date: 20110831
  Serious: Yes (Death, Hospitalization, Other)
  Sender: FDA-Public Use
  Company Number: THYM-1001078

PATIENT
  Age: 65 Year
  Sex: Female
  Weight: 45 kg

DRUGS (10)
  1. BACTRIM [Concomitant]
  2. METHYLPREDNSOLONE SODIUM SUCCINATE (METHYLPREDNISOLONE SODIUM SUCCINAT [Concomitant]
  3. FUROSEMIDE [Concomitant]
  4. TRICHLORMETHIAZIDE [Concomitant]
  5. THYMOGLOBULIN [Suspect]
     Indication: APLASTIC ANAEMIA
     Dosage: 125 MG, QD, INTRAVENOUS
     Route: 042
     Dates: start: 20090427, end: 20090501
  6. AMLODIPINE BESYLATE [Concomitant]
  7. ITRACONAZOLE [Concomitant]
  8. PREDNISOLONE [Concomitant]
  9. CYCLOSPORINE [Concomitant]
  10. VALSARTAN [Concomitant]

REACTIONS (7)
  - RENAL FAILURE ACUTE [None]
  - DISEASE PROGRESSION [None]
  - APLASTIC ANAEMIA [None]
  - DISSEMINATED INTRAVASCULAR COAGULATION [None]
  - PNEUMONIA [None]
  - NO THERAPEUTIC RESPONSE [None]
  - SEPSIS [None]
